FAERS Safety Report 6252021-4 (Version None)
Quarter: 2009Q2

REPORT INFORMATION
  Report Type: 
  Country: None (occurrence: None)
  Receive Date: 20090630
  Receipt Date: 20050905
  Transmission Date: 20091009
  Serious: Yes (Hospitalization)
  Sender: FDA-Public Use
  Company Number: US-ROCHE-638535

PATIENT
  Sex: Male

DRUGS (5)
  1. ENFUVIRTIDE [Suspect]
     Route: 065
     Dates: start: 20031020, end: 20080814
  2. KALETRA [Concomitant]
     Dates: start: 20031020, end: 20080814
  3. SUSTIVA [Concomitant]
     Dosage: FREQUENCY: QHS
     Dates: start: 20031020, end: 20080414
  4. VIREAD [Concomitant]
     Dosage: FREQUENCY:QD
     Dates: start: 20031020, end: 20080814
  5. ACYCLOVIR [Concomitant]
     Dates: end: 20050323

REACTIONS (1)
  - CONVULSION [None]
